FAERS Safety Report 4688407-9 (Version None)
Quarter: 2005Q2

REPORT INFORMATION
  Report Type: 
  Country: None (occurrence: None)
  Receive Date: 20050610
  Receipt Date: 20050610
  Transmission Date: 20051028
  Serious: Yes (Hospitalization)
  Sender: FDA-Public Use
  Company Number: None

PATIENT
  Age: 56 Year
  Sex: Male
  Weight: 89.6 kg

DRUGS (21)
  1. ALEMTUZUMAB     30 MG [Suspect]
  2. ASPIRIN [Concomitant]
  3. LIPITOR [Concomitant]
  4. ARANESP [Concomitant]
  5. CALCIUM WITH VITAMIN D [Concomitant]
  6. SODIUM BICARBONATE [Concomitant]
  7. COLACE [Concomitant]
  8. LANTUS [Concomitant]
  9. MYCELEX [Concomitant]
  10. MAGNESIUM OXIDE [Concomitant]
  11. CELLCEPT [Concomitant]
  12. PROTONIX OR PRILOSEC PER PATIENT CHOICE [Concomitant]
  13. NOVOLOG [Concomitant]
  14. VITAMIN E [Concomitant]
  15. BACTRIM [Concomitant]
  16. VALCYTE [Concomitant]
  17. LASIX [Concomitant]
  18. QUININE SULFATE [Concomitant]
  19. ATENOLOL [Concomitant]
  20. AMBIEN [Concomitant]
  21. TUMS [Concomitant]

REACTIONS (1)
  - NO ADVERSE DRUG EFFECT [None]
